FAERS Safety Report 5611412-2 (Version None)
Quarter: 2008Q1

REPORT INFORMATION
  Report Type: 
  Country: None (occurrence: None)
  Receive Date: 20080201
  Receipt Date: 20080121
  Transmission Date: 20080703
  Serious: Yes (Death, Other)
  Sender: FDA-Public Use
  Company Number: IE-PFIZER INC-2008003224

PATIENT
  Sex: Male

DRUGS (1)
  1. SUTENT [Suspect]
     Indication: RENAL CANCER METASTATIC
     Dosage: DAILY DOSE:37.5MG
     Route: 048

REACTIONS (4)
  - CEREBRAL INFARCTION [None]
  - GASTROENTERITIS [None]
  - HEMIPARESIS [None]
  - RENAL FAILURE ACUTE [None]
